FAERS Safety Report 9937143 (Version 1)
Quarter: 2014Q1

REPORT INFORMATION
  Report Type: Spontaneous
  Country: IN (occurrence: IN)
  Receive Date: 20140301
  Receipt Date: 20140301
  Transmission Date: 20141002
  Serious: Yes (Other)
  Sender: FDA-Public Use
  Company Number: PHHY2014IN021985

PATIENT
  Age: 18 Year
  Sex: Female

DRUGS (2)
  1. HYALURONIDASE [Suspect]
     Indication: COLLAGEN DISORDER
     Dosage: 1500 U/ML, UNK
     Route: 026
  2. TRIAMCINOLONE [Suspect]
     Indication: COLLAGEN DISORDER
     Dosage: 40 MG/ML, UNK
     Route: 026

REACTIONS (6)
  - Telangiectasia [Not Recovered/Not Resolved]
  - Skin wrinkling [Unknown]
  - Skin hyperpigmentation [Recovering/Resolving]
  - Skin atrophy [Not Recovered/Not Resolved]
  - Skin depigmentation [Unknown]
  - Drug ineffective [Unknown]
